FAERS Safety Report 7021361-3 (Version None)
Quarter: 2010Q3

REPORT INFORMATION
  Report Type: 
  Country: None (occurrence: None)
  Receive Date: 20100929
  Receipt Date: 20100916
  Transmission Date: 20110219
  Serious: Yes (Other)
  Sender: FDA-Public Use
  Company Number: US-PFIZER INC-2010117725

PATIENT
  Sex: Female

DRUGS (1)
  1. NEURONTIN [Suspect]
     Indication: TRIGEMINAL NEURALGIA
     Dosage: UNK
     Route: 048
     Dates: start: 20091001

REACTIONS (3)
  - MUSCULAR WEAKNESS [None]
  - PAIN IN EXTREMITY [None]
  - PARAESTHESIA [None]
